FAERS Safety Report 12741297 (Version 17)
Quarter: 2018Q1

REPORT INFORMATION
  Report Type: Report from Study
  Country: CA (occurrence: CA)
  Receive Date: 20160914
  Receipt Date: 20180323
  Transmission Date: 20180508
  Serious: Yes (Hospitalization, Other)
  Sender: FDA-Public Use
  Company Number: PHHY2014CA027198

PATIENT
  Age: 53 Year
  Sex: Female

DRUGS (11)
  1. SANDOSTATIN LAR DEPOT [Suspect]
     Active Substance: OCTREOTIDE ACETATE
     Dosage: 60 MG, (EVERY 4 WEEKS) QMO
     Route: 030
     Dates: start: 20160405, end: 20160825
  2. SANDOSTATIN LAR DEPOT [Suspect]
     Active Substance: OCTREOTIDE ACETATE
     Dosage: UNK
     Route: 030
     Dates: start: 20170905
  3. AFINITOR [Suspect]
     Active Substance: EVEROLIMUS
     Dosage: 7.5 MG, QD
     Route: 048
     Dates: start: 20161211, end: 201701
  4. SANDOSTATIN LAR DEPOT [Suspect]
     Active Substance: OCTREOTIDE ACETATE
     Dosage: 60 MG, QMO
     Route: 030
  5. METADOL [Concomitant]
     Indication: PAIN MANAGEMENT
     Dosage: 7.5 MG, UNK
     Route: 048
  6. SANDOSTATIN LAR DEPOT [Suspect]
     Active Substance: OCTREOTIDE ACETATE
     Indication: CARCINOID TUMOUR
     Dosage: 60 MG, (EVERY 4 WEEKS) QMO
     Route: 030
     Dates: start: 20140103, end: 20150814
  7. SANDOSTATIN LAR DEPOT [Suspect]
     Active Substance: OCTREOTIDE ACETATE
     Dosage: 30 MG (EVERY 4 WEEKS) QMO
     Route: 030
     Dates: start: 20151014, end: 20160308
  8. HYDROMORPHONE [Concomitant]
     Active Substance: HYDROMORPHONE
     Indication: PAIN MANAGEMENT
     Dosage: 8 MG, UNK
     Route: 048
  9. SANDOSTATIN LAR DEPOT [Suspect]
     Active Substance: OCTREOTIDE ACETATE
     Dosage: 60 MG, (EVERY 4 WEEKS) QMO
     Route: 030
     Dates: start: 20150918, end: 20150918
  10. SANDOSTATIN LAR DEPOT [Suspect]
     Active Substance: OCTREOTIDE ACETATE
     Dosage: 60 MG, (EVERY 4 WEEKS) QMO
     Route: 030
     Dates: start: 20170125
  11. AFINITOR [Suspect]
     Active Substance: EVEROLIMUS
     Indication: NEUROENDOCRINE TUMOUR
     Dosage: 10 MG, QD
     Route: 048
     Dates: start: 2016, end: 20161210

REACTIONS (41)
  - Tendon disorder [Recovered/Resolved]
  - Arthropathy [Unknown]
  - Discomfort [Recovered/Resolved]
  - Blood pressure systolic increased [Unknown]
  - Teeth brittle [Unknown]
  - Flatulence [Unknown]
  - Dizziness [Unknown]
  - Dyspepsia [Unknown]
  - Nausea [Unknown]
  - Tooth disorder [Unknown]
  - Body temperature decreased [Unknown]
  - Movement disorder [Recovered/Resolved]
  - Labyrinthitis [Unknown]
  - Weight decreased [Unknown]
  - Drug intolerance [Unknown]
  - Heart rate decreased [Unknown]
  - Ligament sprain [Recovered/Resolved]
  - Dry mouth [Unknown]
  - Heart rate increased [Unknown]
  - Therapeutic response decreased [Unknown]
  - Malignant neoplasm progression [Unknown]
  - Intestinal obstruction [Unknown]
  - Feeling abnormal [Unknown]
  - Asthenia [Unknown]
  - Diarrhoea [Unknown]
  - Abdominal pain [Recovered/Resolved]
  - Pain [Unknown]
  - Abdominal pain upper [Not Recovered/Not Resolved]
  - Rash [Unknown]
  - Abdominal pain [Unknown]
  - Flushing [Unknown]
  - Fatigue [Unknown]
  - Stomatitis [Unknown]
  - Malaise [Recovering/Resolving]
  - Femur fracture [Unknown]
  - Constipation [Unknown]
  - Drug ineffective [Unknown]
  - Eating disorder [Unknown]
  - Menopausal symptoms [Unknown]
  - Constipation [Recovered/Resolved]
  - Dyspnoea [Unknown]

NARRATIVE: CASE EVENT DATE: 20140223
